FAERS Safety Report 20302838 (Version 1)
Quarter: 2022Q1

REPORT INFORMATION
  Report Type: Other
  Country: None (occurrence: IR)
  Receive Date: 20220106
  Receipt Date: 20220106
  Transmission Date: 20220423
  Serious: Yes (Life-Threatening, Hospitalization, Congenital Anomaly, Other)
  Sender: FDA-Public Use
  Company Number: IR-ACI HealthCare Limited-2123660

PATIENT
  Age: 5 Day
  Sex: Male
  Weight: 3.3 kg

DRUGS (4)
  1. SERTRALINE [Suspect]
     Active Substance: SERTRALINE HYDROCHLORIDE
     Indication: Foetal exposure during pregnancy
     Route: 064
  2. RISPERIDONE [Suspect]
     Active Substance: RISPERIDONE
     Route: 064
  3. QUETIAPINE [Suspect]
     Active Substance: QUETIAPINE
     Route: 064
  4. CLONAZEPAM [Suspect]
     Active Substance: CLONAZEPAM
     Route: 064

REACTIONS (9)
  - Seizure [Recovered/Resolved]
  - Cryptorchism [Recovered/Resolved]
  - Congenital hydronephrosis [Recovered/Resolved]
  - Atrial septal defect [Recovered/Resolved]
  - Patent ductus arteriosus [Recovered/Resolved]
  - Tricuspid valve incompetence [Recovered/Resolved]
  - Foetal exposure during pregnancy [Recovered/Resolved with Sequelae]
  - Meconium aspiration syndrome [Recovered/Resolved]
  - Paraesthesia [Unknown]
